FAERS Safety Report 5262470-9 (Version None)
Quarter: 2007Q1

REPORT INFORMATION
  Report Type: 
  Country: None (occurrence: None)
  Receive Date: 20070312
  Receipt Date: 20070308
  Transmission Date: 20070707
  Serious: Yes (Hospitalization)
  Sender: FDA-Public Use
  Company Number: PL-BRISTOL-MYERS SQUIBB COMPANY-13331699

PATIENT
  Age: 58 Year
  Sex: Male

DRUGS (4)
  1. DASATINIB [Suspect]
     Indication: LEUKAEMIA
     Dosage: INTERRUPT: 29MAR06
     Route: 048
     Dates: start: 20060301, end: 20060330
  2. CALCIUM PHOSPHATE [Concomitant]
     Dates: start: 20060224, end: 20060329
  3. ETAMSYLATE [Concomitant]
     Dates: start: 20060323
  4. TRANEXAMIC ACID [Concomitant]
     Dates: start: 20060303

REACTIONS (3)
  - DEHYDRATION [None]
  - DIARRHOEA [None]
  - RENAL FAILURE [None]
